FAERS Safety Report 17376425 (Version 2)
Quarter: 2020Q1

REPORT INFORMATION
  Report Type: Report from Study
  Country: BR (occurrence: BR)
  Receive Date: 20200206
  Receipt Date: 20200217
  Transmission Date: 20200409
  Serious: Yes (Other)
  Sender: FDA-Public Use
  Company Number: NVSC2019BR062107

PATIENT
  Age: 32 Year
  Sex: Female

DRUGS (1)
  1. COSENTYX [Suspect]
     Active Substance: SECUKINUMAB
     Indication: PSORIASIS
     Dosage: 300 MG
     Route: 065
     Dates: start: 20190808

REACTIONS (8)
  - Urinary tract infection [Recovered/Resolved]
  - Pharyngeal swelling [Recovered/Resolved]
  - Throat tightness [Recovering/Resolving]
  - Back pain [Recovering/Resolving]
  - Throat irritation [Unknown]
  - Pyrexia [Recovering/Resolving]
  - Pulmonary oedema [Recovered/Resolved]
  - Immunodeficiency [Unknown]

NARRATIVE: CASE EVENT DATE: 201910
